FAERS Safety Report 7216178-0 (Version None)
Quarter: 2011Q1

REPORT INFORMATION
  Report Type: 
  Country: None (occurrence: None)
  Receive Date: 20110107
  Receipt Date: 20101231
  Transmission Date: 20110831
  Serious: Yes (Death)
  Sender: FDA-Public Use
  Company Number: US-PFIZER INC-2011002331

PATIENT
  Age: 35 Year
  Sex: Female

DRUGS (5)
  1. DIPHENHYDRAMINE [Suspect]
     Dosage: UNKNOWN
  2. HYDROMORPHONE [Suspect]
     Dosage: UNKNOWN
  3. CYCLOBENZAPRINE [Suspect]
     Dosage: UNKNOWN
  4. VENLAFAXINE HCL [Suspect]
     Dosage: UNKNOWN
  5. OXYCODONE [Suspect]
     Dosage: UNKNOWN

REACTIONS (1)
  - DEATH [None]
